FAERS Safety Report 4821149-5 (Version None)
Quarter: 2005Q4

REPORT INFORMATION
  Report Type: 
  Country: None (occurrence: None)
  Receive Date: 20051102
  Receipt Date: 20051018
  Transmission Date: 20060501
  Serious: Yes (Hospitalization, Disabling, Other)
  Sender: FDA-Public Use
  Company Number: US_0510123076

PATIENT
  Sex: Male
  Weight: 89 kg

DRUGS (2)
  1. CIALIS [Suspect]
     Indication: ERECTILE DYSFUNCTION
     Dates: start: 20050811
  2. LOTREL [Concomitant]

REACTIONS (2)
  - HAEMORRHAGIC STROKE [None]
  - HEADACHE [None]
